FAERS Safety Report 6470841-8 (Version None)
Quarter: 2009Q4

REPORT INFORMATION
  Report Type: 
  Country: None (occurrence: None)
  Receive Date: 20091203
  Receipt Date: 20080522
  Transmission Date: 20100525
  Serious: Yes (Disabling)
  Sender: FDA-Public Use
  Company Number: MX-ELI_LILLY_AND_COMPANY-MX200801004041

PATIENT
  Age: 63 Year
  Sex: Female

DRUGS (3)
  1. CYMBALTA [Suspect]
     Indication: NEUROPATHY PERIPHERAL
     Dosage: UNK, UNKNOWN
     Route: 065
  2. REPAGLINIDE [Concomitant]
     Indication: DIABETES MELLITUS
     Dosage: 2 MG, 2/D
     Route: 065
  3. AMLODIPINE [Concomitant]
     Indication: HYPERTENSION
     Dosage: UNK, DAILY (1/D)
     Route: 065

REACTIONS (4)
  - ABASIA [None]
  - GAIT DISTURBANCE [None]
  - MOVEMENT DISORDER [None]
  - SPEECH DISORDER [None]
